FAERS Safety Report 5838572-2 (Version None)
Quarter: 2008Q3

REPORT INFORMATION
  Report Type: 
  Country: None (occurrence: None)
  Receive Date: 20080808
  Receipt Date: 20080804
  Transmission Date: 20090109
  Serious: Yes (Hospitalization, Other)
  Sender: FDA-Public Use
  Company Number: ES-ASTRAZENECA-2008AC02003

PATIENT
  Age: 4 Year
  Sex: Male
  Weight: 20 kg

DRUGS (18)
  1. MEROPENEM [Suspect]
     Indication: INFECTION
  2. MEROPENEM [Interacting]
     Indication: BACTERIAL INFECTION
  3. VALPROIC ACID [Interacting]
     Indication: EPILEPSY
     Route: 042
  4. VALPROIC ACID [Interacting]
     Route: 042
  5. VALPROIC ACID [Interacting]
     Route: 042
  6. VALPROIC ACID [Interacting]
     Route: 042
  7. VALPROIC ACID [Interacting]
     Route: 042
  8. VALPROIC ACID [Interacting]
     Route: 042
  9. VALPROIC ACID [Interacting]
     Route: 048
  10. VALPROIC ACID [Interacting]
     Route: 048
  11. VALPROIC ACID [Interacting]
     Route: 048
  12. MIDAZOLAM HCL [Concomitant]
     Route: 045
  13. CLONAZEPAM [Concomitant]
  14. CEFOTAXIME SODIUM [Concomitant]
  15. DIAZEPAM [Concomitant]
     Route: 042
  16. AMOXICILLIN [Concomitant]
  17. CLOBAZAM [Concomitant]
  18. OXCARBAZEPINE [Concomitant]
     Route: 048

REACTIONS (2)
  - ANTICONVULSANT DRUG LEVEL DECREASED [None]
  - DRUG INTERACTION [None]
